FAERS Safety Report 19185464 (Version 2)
Quarter: 2021Q3

REPORT INFORMATION
  Report Type: Spontaneous
  Country: US (occurrence: US)
  Receive Date: 20210427
  Receipt Date: 20210916
  Transmission Date: 20211014
  Serious: No
  Sender: FDA-Public Use
  Company Number: US-PFIZER INC-2021422885

PATIENT
  Age: 49 Year
  Sex: Female

DRUGS (3)
  1. IBRANCE [Suspect]
     Active Substance: PALBOCICLIB
     Dosage: 75 MG TABLETS, CYCLIC, DAYS 1?21 OF A 35 DAY CYCLE, DAILY FOR 21 DAYS THEN 14 DAYS OFF
     Dates: start: 2020
  2. IBRANCE [Suspect]
     Active Substance: PALBOCICLIB
     Indication: BREAST CANCER METASTATIC
     Dosage: 75 MG CAPSULES, CYCLIC, DAYS 1?21 OF 35 DAY CYCLE, DAILY FOR 21 DAYS THEN 14 DAYS OFF
     Route: 048
     Dates: start: 2017
  3. LETROZOLE. [Concomitant]
     Active Substance: LETROZOLE
     Indication: BREAST CANCER METASTATIC
     Dosage: 2.5 MG, 1X/DAY
     Route: 048
     Dates: start: 2016

REACTIONS (5)
  - Off label use [Unknown]
  - Gastric disorder [Unknown]
  - Ulcer [Unknown]
  - Nausea [Unknown]
  - Product formulation issue [Unknown]

NARRATIVE: CASE EVENT DATE: 2020
